FAERS Safety Report 12227852 (Version 2)
Quarter: 2016Q2

REPORT INFORMATION
  Report Type: Report from Study
  Country: US (occurrence: US)
  Receive Date: 20160401
  Receipt Date: 20160406
  Transmission Date: 20160815
  Serious: Yes (Hospitalization)
  Sender: FDA-Public Use
  Company Number: US-ROCHE-1732368

PATIENT
  Age: 48 Year
  Sex: Male
  Weight: 91.4 kg

DRUGS (20)
  1. DUONEB [Concomitant]
     Active Substance: ALBUTEROL SULFATE\IPRATROPIUM BROMIDE
     Indication: COUGH
  2. ATIVAN [Concomitant]
     Active Substance: LORAZEPAM
     Route: 048
  3. LYRICA [Concomitant]
     Active Substance: PREGABALIN
     Route: 048
  4. COMPAZINE [Concomitant]
     Active Substance: PROCHLORPERAZINE MALEATE
     Indication: VOMITING
     Dosage: FOR NAUSEA OR VOMITING
     Route: 048
  5. DECADRON [Concomitant]
     Active Substance: DEXAMETHASONE
     Indication: PREMEDICATION
     Route: 065
  6. MS CONTIN [Concomitant]
     Active Substance: MORPHINE SULFATE
     Indication: CANCER PAIN
     Route: 065
     Dates: start: 20160324
  7. GDC-0994 (ERK INHIBITOR) [Suspect]
     Active Substance: INVESTIGATIONAL PRODUCT
     Indication: METASTATIC NEOPLASM
     Dosage: MOST RECENT DOSE OF 200 MG GDC-0994 PRIOR TO AE ONSET 21/MAR/2016
     Route: 048
  8. ALBUTEROL. [Concomitant]
     Active Substance: ALBUTEROL
     Route: 065
     Dates: start: 20160326
  9. DURAGESIC [Concomitant]
     Active Substance: FENTANYL
     Indication: CANCER PAIN
     Route: 062
     Dates: end: 20160324
  10. LOMOTIL (UNITED STATES) [Concomitant]
     Indication: DIARRHOEA
     Dosage: 2.5/0.025MG
     Route: 048
  11. HYDROCODONE BITARTRATE AND ACETAMINOPHEN [Concomitant]
     Active Substance: ACETAMINOPHEN\HYDROCODONE BITARTRATE
     Dosage: 7.5/300MG   1-2 TABLETS EVERY 6 HOURS
     Route: 048
  12. GDC-0994 (ERK INHIBITOR) [Suspect]
     Active Substance: INVESTIGATIONAL PRODUCT
     Indication: NON-SMALL CELL LUNG CANCER METASTATIC
  13. DUONEB [Concomitant]
     Active Substance: ALBUTEROL SULFATE\IPRATROPIUM BROMIDE
     Indication: DYSPNOEA
  14. VICODIN HP [Concomitant]
     Active Substance: ACETAMINOPHEN\HYDROCODONE BITARTRATE
     Dosage: 10/300MG
     Route: 048
  15. COMPAZINE [Concomitant]
     Active Substance: PROCHLORPERAZINE MALEATE
     Indication: NAUSEA
     Dosage: FOR NAUSEA
     Route: 048
  16. NIZORAL [Concomitant]
     Active Substance: KETOCONAZOLE
     Route: 061
  17. COBIMETINIB [Suspect]
     Active Substance: COBIMETINIB
     Indication: METASTATIC NEOPLASM
     Dosage: 80MG MOST RECENT DOSE OF COBIMETINIB PRIOR TO AE ONSET 21/MAR/2016
     Route: 048
  18. IMODIUM CAPSULES [Concomitant]
     Indication: DIARRHOEA
     Dosage: 2 CAPSULES AT FIRST SIGN OF DIARRHEA, THEN 1 EVERY 2 HOURS UNTIL DIARRHEA FREE FOR 12 HOURS
     Route: 048
  19. COBIMETINIB [Suspect]
     Active Substance: COBIMETINIB
     Indication: NON-SMALL CELL LUNG CANCER METASTATIC
  20. VOLTAREN [Concomitant]
     Active Substance: DICLOFENAC SODIUM
     Route: 048

REACTIONS (3)
  - Hypoxia [Recovered/Resolved]
  - Pneumonia viral [Recovered/Resolved]
  - Rash [Not Recovered/Not Resolved]

NARRATIVE: CASE EVENT DATE: 20160319
